FAERS Safety Report 10146341 (Version 2)
Quarter: 2014Q2

REPORT INFORMATION
  Report Type: Report from Study
  Country: ZM (occurrence: ZM)
  Receive Date: 20140501
  Receipt Date: 20140501
  Transmission Date: 20141212
  Serious: Yes (Death, Other)
  Sender: FDA-Public Use
  Company Number: ZM-SA-200912908GDDC

PATIENT
  Age: 35 Year
  Sex: Male
  Weight: 54.6 kg

DRUGS (7)
  1. RIFAMPICIN [Suspect]
     Indication: TUBERCULOSIS
     Route: 048
     Dates: start: 20090109, end: 20090320
  2. ISONIAZID [Suspect]
     Indication: TUBERCULOSIS
     Route: 048
     Dates: start: 20090109, end: 20090320
  3. PYRAZINAMIDE [Suspect]
     Indication: TUBERCULOSIS
     Route: 048
     Dates: start: 20090109, end: 20090320
  4. INVESTIGATIONAL DRUG [Suspect]
     Indication: TUBERCULOSIS
     Route: 048
     Dates: start: 20090109, end: 20090320
  5. MOXIFLOXACIN [Suspect]
     Indication: TUBERCULOSIS
     Route: 048
     Dates: start: 20090109, end: 20090320
  6. AMITRIPTYLINE [Suspect]
     Indication: PRODUCT USED FOR UNKNOWN INDICATION
     Route: 048
     Dates: start: 20090302, end: 20090319
  7. NO CONCOMITANT DRUG GIVEN [Concomitant]

REACTIONS (3)
  - Guillain-Barre syndrome [Fatal]
  - Pneumonia aspiration [Fatal]
  - Pneumonia [Recovered/Resolved]
